FAERS Safety Report 5962910-3 (Version None)
Quarter: 2008Q4

REPORT INFORMATION
  Report Type: 
  Country: None (occurrence: None)
  Receive Date: 20081120
  Receipt Date: 20081106
  Transmission Date: 20090506
  Serious: Yes (Hospitalization)
  Sender: FDA-Public Use
  Company Number: 233099J08USA

PATIENT
  Age: 51 Year
  Sex: Female
  Weight: 68 kg

DRUGS (3)
  1. REBIF [Suspect]
     Indication: MULTIPLE SCLEROSIS
     Dosage: 44 MCG, 3 IN 1 WEEKS, SUBCUTANEOUS
     Route: 058
     Dates: start: 20070927
  2. TAMOXIFEN CITRATE [Concomitant]
  3. ARIMIDEX [Concomitant]

REACTIONS (4)
  - ANAEMIA [None]
  - ENDOMETRIAL HYPERTROPHY [None]
  - OVARIAN CYST [None]
  - PROCEDURAL PAIN [None]
